FAERS Safety Report 7443782-7 (Version None)
Quarter: 2011Q2

REPORT INFORMATION
  Report Type: 
  Country: None (occurrence: None)
  Receive Date: 20110428
  Receipt Date: 20110422
  Transmission Date: 20111010
  Serious: Yes (Other)
  Sender: FDA-Public Use
  Company Number: US-AMGEN-USASP2011021286

PATIENT
  Age: 33 Year
  Sex: Male

DRUGS (1)
  1. ENBREL [Suspect]
     Indication: ANKYLOSING SPONDYLITIS
     Dosage: 50 MG, QWK
     Dates: start: 20110420

REACTIONS (7)
  - DEPRESSION [None]
  - DIZZINESS [None]
  - DISTURBANCE IN ATTENTION [None]
  - HEADACHE [None]
  - ABNORMAL SENSATION IN EYE [None]
  - NAUSEA [None]
  - FATIGUE [None]
